FAERS Safety Report 7093260-2 (Version None)
Quarter: 2010Q4

REPORT INFORMATION
  Report Type: 
  Country: None (occurrence: None)
  Receive Date: 20101110
  Receipt Date: 20101103
  Transmission Date: 20110411
  Serious: Yes (Other)
  Sender: FDA-Public Use
  Company Number: US-ALEXION-A201001332

PATIENT
  Sex: Female
  Weight: 65.306 kg

DRUGS (13)
  1. SOLIRIS [Suspect]
     Indication: PAROXYSMAL NOCTURNAL HAEMOGLOBINURIA
     Dosage: 600 MG, Q2W
     Route: 042
     Dates: start: 20100308, end: 20100101
  2. SOLIRIS [Suspect]
     Dosage: 900 MG, Q2W
  3. SOLIRIS [Suspect]
     Dosage: 1200 MG, UNK
     Route: 042
  4. SOLIRIS [Suspect]
     Dosage: 900 MG, Q2W
  5. ALEVE (CAPLET) [Concomitant]
     Dosage: 220 MG, Q2W
  6. AMBIEN [Concomitant]
     Indication: SLEEP DISORDER
     Dosage: 10 MG, QD
  7. BACTRIM DS [Concomitant]
     Dosage: BID
  8. CALCIUM CARBONATE W/VITAMIN D      /00944201/ [Concomitant]
     Dosage: 600 MG, BID
  9. VITAMIN D3 [Concomitant]
     Dosage: QD
  10. GLUCOSAMINE /CHOND                 /03040701/ [Concomitant]
  11. TOPROL-XL [Concomitant]
     Dosage: 50 MG, QD
  12. VALIUM [Concomitant]
     Dosage: 5 MG, PRN
  13. FOLIC ACID [Concomitant]
     Dosage: 5 MG, PRN

REACTIONS (5)
  - DISEASE PROGRESSION [None]
  - LYMPHOPROLIFERATIVE DISORDER [None]
  - MYELODYSPLASTIC SYNDROME [None]
  - NEUTROPENIA [None]
  - UTERINE LEIOMYOSARCOMA [None]
